FAERS Safety Report 6120549-3 (Version None)
Quarter: 2009Q1

REPORT INFORMATION
  Report Type: 
  Country: None (occurrence: None)
  Receive Date: 20090312
  Receipt Date: 20090312
  Transmission Date: 20090719
  Serious: Yes (Hospitalization)
  Sender: FDA-Public Use
  Company Number: None

PATIENT
  Sex: Male
  Weight: 90 kg

DRUGS (2)
  1. CLOLAR [Suspect]
     Dosage: 425 MG
  2. CYTARABINE [Suspect]
     Dosage: 10600 MG

REACTIONS (9)
  - ANAEMIA [None]
  - DEHYDRATION [None]
  - ESCHERICHIA SEPSIS [None]
  - FEBRILE NEUTROPENIA [None]
  - HYPOXIA [None]
  - MULTI-ORGAN FAILURE [None]
  - ORGANISING PNEUMONIA [None]
  - SKIN LESION [None]
  - THROMBOCYTOPENIA [None]
